FAERS Safety Report 7465420-X (Version None)
Quarter: 2011Q2

REPORT INFORMATION
  Report Type: 
  Country: None (occurrence: None)
  Receive Date: 20110509
  Receipt Date: 20110121
  Transmission Date: 20111010
  Serious: No
  Sender: FDA-Public Use
  Company Number: US-BAUSCH-2011BL000511

PATIENT
  Age: 59 Year
  Sex: Female

DRUGS (2)
  1. LOTEMAX [Suspect]
     Indication: PRODUCT USED FOR UNKNOWN INDICATION
     Route: 047
  2. RESTASIS [Suspect]
     Indication: DRY EYE
     Route: 047

REACTIONS (1)
  - DRUG HYPERSENSITIVITY [None]
